FAERS Safety Report 18286765 (Version 1)
Quarter: 2020Q3

REPORT INFORMATION
  Report Type: Spontaneous
  Country: IN (occurrence: IN)
  Receive Date: 20200921
  Receipt Date: 20200921
  Transmission Date: 20201103
  Serious: Yes (Death, Hospitalization, Other)
  Sender: FDA-Public Use
  Company Number: IN-LUPIN PHARMACEUTICALS INC.-2020-06011

PATIENT
  Age: 44 Year
  Sex: Female

DRUGS (8)
  1. LEVETIRACETAM. [Concomitant]
     Active Substance: LEVETIRACETAM
     Indication: INTRACRANIAL PRESSURE INCREASED
     Dosage: 1 GRAM, QD
     Route: 065
  2. VANCOMYCIN [Suspect]
     Active Substance: VANCOMYCIN
     Indication: COVID-19
     Dosage: 2 GRAM, QD
     Route: 065
  3. METHYLPREDNISOLONE. [Suspect]
     Active Substance: METHYLPREDNISOLONE
     Indication: COVID-19
  4. CEFTRIAXONE. [Suspect]
     Active Substance: CEFTRIAXONE
     Indication: COVID-19
     Dosage: 4 GRAM, QD
     Route: 042
  5. SALINE [SODIUM CHLORIDE] [Concomitant]
     Active Substance: SODIUM CHLORIDE
     Indication: INTRACRANIAL PRESSURE INCREASED
     Dosage: 1.5 LITER, QD
     Route: 065
  6. ACICLOVIR [Concomitant]
     Active Substance: ACYCLOVIR
     Indication: COVID-19
     Dosage: 1.5 GRAM, QD
     Route: 065
  7. MANNITOL. [Concomitant]
     Active Substance: MANNITOL
     Indication: INTRACRANIAL PRESSURE INCREASED
     Dosage: 300 MILLILITER, QD
     Route: 016
  8. METHYLPREDNISOLONE. [Suspect]
     Active Substance: METHYLPREDNISOLONE
     Indication: ACUTE HAEMORRHAGIC LEUKOENCEPHALITIS
     Dosage: 1 GRAM, QD
     Route: 042

REACTIONS (2)
  - Drug ineffective [Fatal]
  - Off label use [Unknown]
